FAERS Safety Report 19506257 (Version 2)
Quarter: 2021Q3

REPORT INFORMATION
  Report Type: Spontaneous
  Country: FR (occurrence: FR)
  Receive Date: 20210708
  Receipt Date: 20210810
  Transmission Date: 20211014
  Serious: Yes (Hospitalization)
  Sender: FDA-Public Use
  Company Number: NVSC2021FR148787

PATIENT
  Age: 60 Year
  Sex: Male
  Weight: 135 kg

DRUGS (15)
  1. CEFEPIME [Suspect]
     Active Substance: CEFEPIME HYDROCHLORIDE
     Indication: DEVICE RELATED INFECTION
     Dosage: 2 G, Q8H
     Route: 042
     Dates: start: 20210512, end: 20210517
  2. DAPTOMYCINE [Suspect]
     Active Substance: DAPTOMYCIN
     Dosage: 1 G,QD
     Route: 042
     Dates: start: 20210615
  3. KARDEGIC [Suspect]
     Active Substance: ASPIRIN DL-LYSINE
     Indication: MYOCARDIAL ISCHAEMIA
     Dosage: 75 MG,QD
     Route: 048
     Dates: start: 20210602, end: 20210613
  4. KARDEGIC [Suspect]
     Active Substance: ASPIRIN DL-LYSINE
     Dosage: 75 MG,QD
     Route: 048
     Dates: end: 20210614
  5. TEICOPLANINE [Suspect]
     Active Substance: TEICOPLANIN
     Indication: DEVICE RELATED INFECTION
     Dosage: 6 MG/KG, Q12H
     Route: 040
     Dates: start: 20210602, end: 20210609
  6. ENOXAPARINE SODIQUE [Suspect]
     Active Substance: ENOXAPARIN SODIUM
     Indication: THROMBOSIS PROPHYLAXIS
     Dosage: 0.4 ML, Q12H
     Route: 058
     Dates: start: 20210512, end: 20210614
  7. ENOXAPARINE SODIQUE [Suspect]
     Active Substance: ENOXAPARIN SODIUM
     Dosage: 0.6 ML, QD
     Route: 059
     Dates: start: 20210622
  8. CLOPIDOGREL [Concomitant]
     Active Substance: CLOPIDOGREL BISULFATE
     Indication: MYOCARDIAL ISCHAEMIA
     Dosage: 75 MG,QD
     Route: 048
  9. LANSOPRAZOLE. [Suspect]
     Active Substance: LANSOPRAZOLE
     Indication: PRODUCT USED FOR UNKNOWN INDICATION
     Dosage: 15 MG,QD
     Route: 048
     Dates: start: 20210512, end: 20210609
  10. PARACETAMOL [Suspect]
     Active Substance: ACETAMINOPHEN
     Indication: PAIN
     Dosage: UNK
     Route: 048
     Dates: start: 20210512, end: 20210614
  11. LANSOPRAZOLE. [Suspect]
     Active Substance: LANSOPRAZOLE
     Indication: PRODUCT USED FOR UNKNOWN INDICATION
  12. DAPTOMYCINE [Suspect]
     Active Substance: DAPTOMYCIN
     Indication: DEVICE RELATED INFECTION
     Dosage: 1 G,QD
     Route: 042
     Dates: start: 20210512, end: 20210601
  13. RIFAMPICIN [Suspect]
     Active Substance: RIFAMPIN
     Indication: DEVICE RELATED INFECTION
     Dosage: 600 MG, Q12H
     Route: 048
     Dates: start: 20210602, end: 20210615
  14. KARDEGIC [Suspect]
     Active Substance: ASPIRIN DL-LYSINE
     Dosage: 75 MG,QD
     Route: 048
     Dates: start: 20210622
  15. TEICOPLANINE [Suspect]
     Active Substance: TEICOPLANIN
     Dosage: 6 MG/KG, QD
     Route: 040
     Dates: start: 20210609, end: 20210615

REACTIONS (2)
  - Thrombocytopenia [Recovered/Resolved]
  - Acute kidney injury [Recovered/Resolved]

NARRATIVE: CASE EVENT DATE: 20210612
